FAERS Safety Report 20289760 (Version 1)
Quarter: 2022Q1

REPORT INFORMATION
  Report Type: Spontaneous
  Country: US (occurrence: None)
  Receive Date: 20220103
  Receipt Date: 20220103
  Transmission Date: 20220423
  Serious: Yes (Other)
  Sender: FDA-Public Use
  Company Number: None

PATIENT
  Age: 29 Year
  Sex: Female
  Weight: 84.15 kg

DRUGS (1)
  1. CASIRIVIMAB\IMDEVIMAB [Suspect]
     Active Substance: CASIRIVIMAB\IMDEVIMAB
     Indication: COVID-19
     Dates: start: 20211228, end: 20211228

REACTIONS (6)
  - Dizziness [None]
  - Erythema [None]
  - Dyspnoea [None]
  - Dizziness [None]
  - Maternal exposure during pregnancy [None]
  - Delivery [None]

NARRATIVE: CASE EVENT DATE: 20211228
